FAERS Safety Report 5402529-6 (Version None)
Quarter: 2007Q3

REPORT INFORMATION
  Report Type: 
  Country: None (occurrence: None)
  Receive Date: 20070801
  Receipt Date: 20061013
  Transmission Date: 20080115
  Serious: No
  Sender: FDA-Public Use
  Company Number: A0623597A

PATIENT
  Sex: Male

DRUGS (1)
  1. IMITREX [Suspect]
     Indication: DRUG USE FOR UNKNOWN INDICATION
     Route: 048

REACTIONS (1)
  - MEDIASTINAL DISORDER [None]
